FAERS Safety Report 8062675-8 (Version None)
Quarter: 2012Q1

REPORT INFORMATION
  Report Type: 
  Country: None (occurrence: None)
  Receive Date: 20120123
  Receipt Date: 20120120
  Transmission Date: 20120608
  Serious: Yes (Hospitalization, Congenital Anomaly, Other)
  Sender: FDA-Public Use
  Company Number: SE-BAYER-2011-120939

PATIENT
  Age: 41 Week
  Sex: Male
  Weight: 4.14 kg

DRUGS (1)
  1. MIRENA [Suspect]
     Route: 064

REACTIONS (6)
  - CARDIAC MURMUR [None]
  - INCREASED UPPER AIRWAY SECRETION [None]
  - GRUNTING [None]
  - CYANOSIS [None]
  - RESPIRATORY RATE INCREASED [None]
  - CONGENITAL AORTIC STENOSIS [None]
